FAERS Safety Report 14310031 (Version 2)
Quarter: 2017Q4

REPORT INFORMATION
  Report Type: Spontaneous
  Country: ES (occurrence: ES)
  Receive Date: 20171220
  Receipt Date: 20171222
  Transmission Date: 20180321
  Serious: Yes (Other)
  Sender: FDA-Public Use
  Company Number: ES-PFIZER INC-2017538017

PATIENT
  Age: 67 Year
  Sex: Female

DRUGS (3)
  1. LORAZEPAM. [Concomitant]
     Active Substance: LORAZEPAM
     Dosage: REDUCED DOSE
  2. LYRICA [Suspect]
     Active Substance: PREGABALIN
     Indication: FIBROMYALGIA
     Dosage: UNK
  3. LORAZEPAM. [Concomitant]
     Active Substance: LORAZEPAM
     Dosage: UNK

REACTIONS (5)
  - Parkinson^s disease [Unknown]
  - Musculoskeletal stiffness [Unknown]
  - Pain [Unknown]
  - Gait disturbance [Unknown]
  - Visual impairment [Unknown]
